FAERS Safety Report 17535584 (Version 1)
Quarter: 2020Q1

REPORT INFORMATION
  Report Type: Spontaneous
  Country: BR (occurrence: BR)
  Receive Date: 20200313
  Receipt Date: 20200313
  Transmission Date: 20200409
  Serious: Yes (Other)
  Sender: FDA-Public Use
  Company Number: BR-AMGEN-BRASP2020040424

PATIENT
  Age: 90 Year
  Sex: Female

DRUGS (10)
  1. ARAVA [Concomitant]
     Active Substance: LEFLUNOMIDE
     Dosage: 20 MILLIGRAM
  2. BENICAR HCT [Concomitant]
     Active Substance: HYDROCHLOROTHIAZIDE\OLMESARTAN MEDOXOMIL
     Indication: HYPERTENSION
     Dosage: 20 MILLIGRAM, QD
  3. TRAMADOL. [Concomitant]
     Active Substance: TRAMADOL
     Dosage: UNK, QD
  4. ALENDRONATE SODIUM. [Concomitant]
     Active Substance: ALENDRONATE SODIUM
     Dosage: 10 MILLIGRAM, QD
  5. CARVEDILOL. [Concomitant]
     Active Substance: CARVEDILOL
     Dosage: 6.25 MILLIGRAM, QD
  6. ALDACTONE [Concomitant]
     Active Substance: SPIRONOLACTONE
     Dosage: UNK
  7. CALCIUM [Concomitant]
     Active Substance: CALCIUM
     Dosage: UNK
  8. METHOTREXATE. [Concomitant]
     Active Substance: METHOTREXATE
     Dosage: 2.5 MILLIGRAM, QWK
  9. ENBREL [Suspect]
     Active Substance: ETANERCEPT
     Indication: RHEUMATOID ARTHRITIS
     Dosage: UNK
     Route: 065
     Dates: end: 201909
  10. FOLIC ACID. [Concomitant]
     Active Substance: FOLIC ACID
     Dosage: UNK UNK, ONCE A WEEK

REACTIONS (6)
  - Bone disorder [Unknown]
  - Deafness [Not Recovered/Not Resolved]
  - Fall [Unknown]
  - Osteoporosis [Unknown]
  - Femur fracture [Unknown]
  - Pain [Not Recovered/Not Resolved]
